FAERS Safety Report 7609541-7 (Version None)
Quarter: 2011Q3

REPORT INFORMATION
  Report Type: 
  Country: None (occurrence: None)
  Receive Date: 20110714
  Receipt Date: 20110706
  Transmission Date: 20111222
  Serious: Yes (Hospitalization)
  Sender: FDA-Public Use
  Company Number: US-MILLENNIUM PHARMACEUTICALS, INC.-2011-02681

PATIENT
  Sex: Male
  Weight: 58.413 kg

DRUGS (18)
  1. COMPAZINE [Concomitant]
     Indication: NAUSEA
     Dosage: 10 MG, PRN
     Dates: start: 20110301
  2. ATIVAN [Concomitant]
     Indication: PREMEDICATION
     Dosage: 1 MG, UNK
     Route: 048
     Dates: start: 20110301
  3. LISINOPRIL [Concomitant]
     Indication: HYPERTENSION
     Dosage: 5 MG, QD
     Route: 048
     Dates: start: 20050505
  4. PENTAMIDINE ISETHIONATE [Concomitant]
     Indication: PRODUCT USED FOR UNKNOWN INDICATION
     Dosage: 31 UNK, UNK
     Dates: start: 20110331
  5. VELCADE [Suspect]
     Dosage: 2.6 MG, CYCLIC
     Route: 042
     Dates: start: 20110301, end: 20110622
  6. ANZEMET [Concomitant]
     Indication: PREMEDICATION
     Dosage: 100 MG, UNK
     Route: 048
     Dates: start: 20110301
  7. ASACOL [Concomitant]
     Indication: COLITIS ULCERATIVE
     Dosage: 2400 MG, QD
     Dates: start: 20090220
  8. ALOXI [Concomitant]
     Indication: PREMEDICATION
     Dosage: 0.25 MG, UNK
     Route: 042
  9. PROSCAR [Concomitant]
     Indication: PROSTATOMEGALY
     Dosage: 5 MG, QD
     Dates: start: 20010204
  10. FLOMAX [Concomitant]
     Indication: PROSTATOMEGALY
     Dosage: 0.4 MG, QD
     Dates: start: 20080813
  11. COMPAZINE [Concomitant]
     Indication: VOMITING
  12. ACYCLOVIR [Concomitant]
     Indication: PROPHYLAXIS
     Dosage: 400 MG, BID
     Dates: start: 20110301
  13. DECADRON [Concomitant]
     Indication: PREMEDICATION
     Dosage: 10 MG, UNK
     Route: 042
     Dates: start: 20110301
  14. BENDAMUSTINE [Suspect]
     Dosage: 150 MG, CYCLIC
     Route: 042
     Dates: start: 20110301, end: 20110622
  15. RITUXIMAB [Suspect]
     Dosage: 626 MG, CYCLIC
     Route: 042
     Dates: start: 20110301, end: 20110622
  16. FOLIC ACID [Concomitant]
     Indication: PRODUCT USED FOR UNKNOWN INDICATION
     Dosage: 800 UG, QD
     Dates: start: 20020614
  17. BENADRYL [Concomitant]
     Indication: PREMEDICATION
     Dosage: 25 MG, PRN
     Route: 048
     Dates: start: 20110301
  18. TYLENOL (CAPLET) [Concomitant]
     Indication: PREMEDICATION
     Dosage: 650 MG, UNK
     Route: 042
     Dates: start: 20110301

REACTIONS (1)
  - PANCREATITIS [None]
